FAERS Safety Report 10486919 (Version 2)
Quarter: 2020Q2

REPORT INFORMATION
  Report Type: Spontaneous
  Country: CA (occurrence: CA)
  Receive Date: 20141001
  Receipt Date: 20200417
  Transmission Date: 20200713
  Serious: Yes (Hospitalization, Disabling, Other)
  Sender: FDA-Public Use
  Company Number: CA-TEVA-512084USA

PATIENT
  Age: 16 Year
  Sex: Female
  Weight: 119 kg

DRUGS (2)
  1. ALESSE 28 [Suspect]
     Active Substance: ETHINYL ESTRADIOL\LEVONORGESTREL
     Indication: PRODUCT USED FOR UNKNOWN INDICATION
     Dosage: 1.0 DOSAGE FORMS
  2. METFORMIN [Suspect]
     Active Substance: METFORMIN HYDROCHLORIDE
     Indication: PRODUCT USED FOR UNKNOWN INDICATION
     Dosage: 2 GRAM DAILY;

REACTIONS (2)
  - Cerebral venous thrombosis [Unknown]
  - Cerebrovascular accident [Unknown]
